FAERS Safety Report 4679075-0 (Version None)
Quarter: 2005Q2

REPORT INFORMATION
  Report Type: 
  Country: None (occurrence: None)
  Receive Date: 20050527
  Receipt Date: 20050330
  Transmission Date: 20051028
  Serious: No
  Sender: FDA-Public Use
  Company Number: PHEH2005US00779

PATIENT
  Sex: Female

DRUGS (3)
  1. ZELNORM [Suspect]
  2. LASIX [Concomitant]
  3. MOBIC [Concomitant]

REACTIONS (10)
  - ACTIVITIES OF DAILY LIVING IMPAIRED [None]
  - ASTHENIA [None]
  - BLOOD PRESSURE ABNORMAL [None]
  - EYE IRRITATION [None]
  - FEELING ABNORMAL [None]
  - NASAL DISCOMFORT [None]
  - OEDEMA PERIPHERAL [None]
  - SWELLING [None]
  - SWELLING FACE [None]
  - TREMOR [None]
